FAERS Safety Report 15577833 (Version 1)
Quarter: 2018Q4

REPORT INFORMATION
  Report Type: Spontaneous
  Country: US (occurrence: US)
  Receive Date: 20181029
  Receipt Date: 20181029
  Transmission Date: 20190205
  Serious: Yes (Other)
  Sender: FDA-Public Use
  Company Number: None

PATIENT
  Sex: Female
  Weight: 72.57 kg

DRUGS (3)
  1. ROSUVASTATIN CALCIUM 10MG TAB, GENERIC FOR CRESTOR 10MG TAB [Suspect]
     Active Substance: ROSUVASTATIN CALCIUM
     Indication: BLOOD CHOLESTEROL
     Dosage: ?          QUANTITY:1 DF DOSAGE FORM;?
     Route: 048
     Dates: start: 20160901, end: 201612
  2. ONE A DAY VITAMINS [Concomitant]
  3. VITAMIN D3 [Concomitant]
     Active Substance: CHOLECALCIFEROL

REACTIONS (6)
  - Musculoskeletal pain [None]
  - Pain [None]
  - Influenza like illness [None]
  - Joint noise [None]
  - Myalgia [None]
  - Joint range of motion decreased [None]
